FAERS Safety Report 22586219 (Version 1)
Quarter: 2023Q2

REPORT INFORMATION
  Report Type: Spontaneous
  Country: US (occurrence: US)
  Receive Date: 20230610
  Receipt Date: 20230610
  Transmission Date: 20230722
  Serious: No
  Sender: FDA-Public Use
  Company Number: US-002147023-NVSC2023US132229

PATIENT
  Sex: Female

DRUGS (1)
  1. GLATOPA [Suspect]
     Active Substance: GLATIRAMER ACETATE
     Indication: Product used for unknown indication
     Dosage: UNK, QD (20MG/1ML)
     Route: 065
     Dates: start: 202305

REACTIONS (4)
  - Erythema [Unknown]
  - Pruritus [Unknown]
  - Pain [Unknown]
  - Injection site mass [Unknown]
